FAERS Safety Report 5654562-7 (Version None)
Quarter: 2008Q1

REPORT INFORMATION
  Report Type: 
  Country: None (occurrence: None)
  Receive Date: 20080307
  Receipt Date: 20080303
  Transmission Date: 20080703
  Serious: Yes (Other)
  Sender: FDA-Public Use
  Company Number: JP-BRISTOL-MYERS SQUIBB COMPANY-14099477

PATIENT
  Age: 4 Year
  Sex: Male

DRUGS (3)
  1. ETOPOSIDE [Suspect]
     Indication: NEUROBLASTOMA
  2. BUSULFAN [Suspect]
     Indication: NEUROBLASTOMA
  3. MELPHALAN [Suspect]
     Indication: NEUROBLASTOMA

REACTIONS (3)
  - HAEMATOCHEZIA [None]
  - OESOPHAGEAL VARICES HAEMORRHAGE [None]
  - VENOOCCLUSIVE LIVER DISEASE [None]
